FAERS Safety Report 13369670 (Version 1)
Quarter: 2017Q1

REPORT INFORMATION
  Report Type: Spontaneous
  Country: US (occurrence: US)
  Receive Date: 20170324
  Receipt Date: 20170324
  Transmission Date: 20170429
  Serious: Yes (Other)
  Sender: FDA-Public Use
  Company Number: US-JNJFOC-20170321248

PATIENT
  Age: 74 Year
  Sex: Female
  Weight: 60.33 kg

DRUGS (21)
  1. REMICADE [Suspect]
     Active Substance: INFLIXIMAB
     Indication: PSORIATIC ARTHROPATHY
     Route: 042
     Dates: start: 20160606
  2. ASPIRIN. [Concomitant]
     Active Substance: ASPIRIN
     Route: 048
  3. REFRESH TEARS [Concomitant]
     Active Substance: CARBOXYMETHYLCELLULOSE SODIUM
     Dosage: 1 DROP IN EACH EYE
     Route: 065
  4. VITAMIN D3 [Concomitant]
     Active Substance: CHOLECALCIFEROL
     Dosage: 2 CAPSULES TWICE A DAY
     Route: 048
  5. ATENOLOL. [Concomitant]
     Active Substance: ATENOLOL
     Dosage: FOR 90 DAYS
     Route: 048
  6. ATORVASTATIN [Concomitant]
     Active Substance: ATORVASTATIN
     Dosage: AT BEDTIME FOR 90 DAYS
     Route: 048
  7. COENZYME Q10 [Concomitant]
     Active Substance: UBIDECARENONE
     Route: 048
  8. KETOCONAZOLE. [Concomitant]
     Active Substance: KETOCONAZOLE
     Dosage: AS DIRECTED
     Route: 065
  9. NITROSTAT [Concomitant]
     Active Substance: NITROGLYCERIN
     Indication: CHEST PAIN
     Dosage: DISSOLVE 1 TABLET UNDER TONGUE EVERY 5 MINUTES AS NEEDED - UPTO 3 DOSES MAXIMUM IN 15 MINUTES
     Route: 060
  10. SPIRONOLACTONE. [Concomitant]
     Active Substance: SPIRONOLACTONE
     Route: 065
  11. VALSARTAN AND HYDROCHLOROTHIAZIDE [Concomitant]
     Active Substance: HYDROCHLOROTHIAZIDE\VALSARTAN
     Dosage: VALSARTAN 320MG - HYDROCHLOROTHIAZIDE 25MG
     Route: 048
  12. REMICADE [Suspect]
     Active Substance: INFLIXIMAB
     Indication: PSORIATIC ARTHROPATHY
     Route: 042
     Dates: start: 20150909
  13. DESONIDE. [Concomitant]
     Active Substance: DESONIDE
     Dosage: AS DIRECTED
     Route: 061
  14. DIAZEPAM. [Concomitant]
     Active Substance: DIAZEPAM
     Dosage: WHEN NECESSARY
     Route: 065
  15. TRIAMCINOLONE ACETONIDE. [Concomitant]
     Active Substance: TRIAMCINOLONE ACETONIDE
     Route: 061
  16. ACETAMINOPHEN. [Concomitant]
     Active Substance: ACETAMINOPHEN
     Dosage: AS DIRECTED
     Route: 048
     Dates: start: 20160606
  17. SYNTHROID [Concomitant]
     Active Substance: LEVOTHYROXINE SODIUM
     Route: 048
  18. ZYRTEC [Concomitant]
     Active Substance: CETIRIZINE HYDROCHLORIDE
     Route: 048
  19. REMICADE [Suspect]
     Active Substance: INFLIXIMAB
     Indication: PSORIATIC ARTHROPATHY
     Route: 042
     Dates: start: 20141222
  20. REMICADE [Suspect]
     Active Substance: INFLIXIMAB
     Indication: PSORIATIC ARTHROPATHY
     Route: 042
     Dates: start: 20150805
  21. NOVOLOG [Concomitant]
     Active Substance: INSULIN ASPART
     Dosage: AS DIRECTED
     Route: 058

REACTIONS (19)
  - Musculoskeletal stiffness [Unknown]
  - Dry eye [Unknown]
  - Rhinorrhoea [Unknown]
  - Red blood cell sedimentation rate increased [Unknown]
  - Haemoglobin decreased [Unknown]
  - Off label use [Unknown]
  - Weight increased [Unknown]
  - Meniere^s disease [Unknown]
  - Osteoarthritis [Unknown]
  - Product use issue [Unknown]
  - Joint swelling [Unknown]
  - Back pain [Unknown]
  - Platelet count decreased [Unknown]
  - Trigger finger [Unknown]
  - Blood creatinine increased [Unknown]
  - Liver function test abnormal [Unknown]
  - Dupuytren^s contracture [Unknown]
  - Bursitis [Unknown]
  - Arthralgia [Unknown]

NARRATIVE: CASE EVENT DATE: 2014
